FAERS Safety Report 9764862 (Version 1)
Quarter: 2013Q4

REPORT INFORMATION
  Report Type: Spontaneous
  Country: US (occurrence: US)
  Receive Date: 20131217
  Receipt Date: 20131217
  Transmission Date: 20140711
  Serious: No
  Sender: FDA-Public Use
  Company Number: US-BIOGENIDEC-2013BI113069

PATIENT
  Age: 54 Year
  Sex: Female
  Weight: 70 kg

DRUGS (4)
  1. TECFIDERA [Suspect]
     Indication: PRODUCT USED FOR UNKNOWN INDICATION
     Route: 048
     Dates: start: 20131114
  2. VITAMIN D3 [Concomitant]
  3. PROBIOTIC [Concomitant]
  4. IBUPROFEN [Concomitant]

REACTIONS (5)
  - Urticaria [Unknown]
  - Rash [Unknown]
  - Erythema [Unknown]
  - Feeling hot [Unknown]
  - Pruritus [Unknown]
